FAERS Safety Report 5059811-4 (Version None)
Quarter: 2006Q3

REPORT INFORMATION
  Report Type: 
  Country: None (occurrence: None)
  Receive Date: 20060724
  Receipt Date: 20060425
  Transmission Date: 20061208
  Serious: Yes (Disabling, Other)
  Sender: FDA-Public Use
  Company Number: DE-GLAXOSMITHKLINE-D0049505A

PATIENT
  Sex: Female
  Weight: 63 kg

DRUGS (2)
  1. REQUIP [Suspect]
     Indication: PARKINSON'S DISEASE
     Dosage: .25MG THREE TIMES PER DAY
     Route: 048
     Dates: start: 20031216
  2. COENZYME Q10 [Concomitant]
     Indication: PARKINSON'S DISEASE
     Route: 048

REACTIONS (3)
  - MACULAR OEDEMA [None]
  - VISION BLURRED [None]
  - VISUAL ACUITY REDUCED [None]
